FAERS Safety Report 19224595 (Version 1)
Quarter: 2021Q2

REPORT INFORMATION
  Report Type: Spontaneous
  Country: US (occurrence: US)
  Receive Date: 20210506
  Receipt Date: 20210506
  Transmission Date: 20210717
  Serious: Yes (Other)
  Sender: FDA-Public Use
  Company Number: US-MYLANLABS-2021M1026799

PATIENT
  Age: 26 Year
  Sex: Male

DRUGS (2)
  1. CISPLATIN. [Suspect]
     Active Substance: CISPLATIN
     Indication: HEPATIC CANCER
     Dosage: RECEIVED 1 CYCLE
     Route: 065
     Dates: start: 201809
  2. GEMCITABINE. [Suspect]
     Active Substance: GEMCITABINE
     Indication: HEPATIC CANCER
     Dosage: RECEIVED 1 CYCLE
     Route: 065
     Dates: start: 201809

REACTIONS (1)
  - Drug ineffective [Unknown]
